FAERS Safety Report 16022210 (Version 1)
Quarter: 2019Q1

REPORT INFORMATION
  Report Type: Spontaneous
  Country: DE (occurrence: DE)
  Receive Date: 20190301
  Receipt Date: 20190301
  Transmission Date: 20190418
  Serious: Yes (Hospitalization, Other)
  Sender: FDA-Public Use
  Company Number: DE-AUROBINDO-AUR-APL-2019-010423

PATIENT

DRUGS (7)
  1. BELLADONNA TINCTURE [Concomitant]
     Active Substance: BELLADONNA LEAF\HOMEOPATHICS
     Indication: PRODUCT USED FOR UNKNOWN INDICATION
     Dosage: 27 GTT DROPS, ONCE A DAY, DAILY DOSE: 27 GTT DROP(S) EVERY DAYS
     Route: 048
  2. RISPERIDON [Concomitant]
     Active Substance: RISPERIDONE
     Indication: PRODUCT USED FOR UNKNOWN INDICATION
     Dosage: 3 MILLIGRAM, ONCE A DAY, DAILY DOSE: 3 MG MILLGRAM(S) EVERY DAYS
     Route: 048
  3. ARIPIPRAZOLE TABLETS [Suspect]
     Active Substance: ARIPIPRAZOLE
     Indication: PRODUCT USED FOR UNKNOWN INDICATION
     Dosage: 5 MILLIGRAM, EINNAHME CA. 8:45 UHR
     Route: 048
     Dates: start: 20180715, end: 20180715
  4. CIATYL [ZUCLOPENTHIXOL] [Concomitant]
     Active Substance: ZUCLOPENTHIXOL
     Indication: PRODUCT USED FOR UNKNOWN INDICATION
     Dosage: 24 GTT DROPS, ONCE A DAY, DAILY DOSE: 24 GTT DROP(S) EVERY DAYS
     Route: 048
  5. RISPERIDONE FILM-COATED TABLET [Suspect]
     Active Substance: RISPERIDONE
     Indication: PRODUCT USED FOR UNKNOWN INDICATION
     Dosage: 3 MILLIGRAM, EINNAHME CA. 8:45 UHR
     Route: 048
     Dates: start: 20180715, end: 20180715
  6. PIPAMPERON [Concomitant]
     Active Substance: PIPAMPERONE HYDROCHLORIDE
     Indication: PRODUCT USED FOR UNKNOWN INDICATION
     Dosage: 120 MILLIGRAM, ONCE A DAY, DAILY DOSE: 120 MG MILLGRAM(S) EVERY DAYS
     Route: 048
  7. QUETIAPINE FILM-COATED TABLET [Suspect]
     Active Substance: QUETIAPINE
     Indication: PRODUCT USED FOR UNKNOWN INDICATION
     Dosage: 200 MILLIGRAM, EINNAHME CA. 8:45 UHR
     Route: 048
     Dates: start: 20180715, end: 20180715

REACTIONS (4)
  - Product dose omission [Recovered/Resolved]
  - Wrong product administered [Recovered/Resolved]
  - Seizure [Recovered/Resolved]
  - Product administration error [Recovered/Resolved]

NARRATIVE: CASE EVENT DATE: 20180715
